FAERS Safety Report 9337500 (Version 3)
Quarter: 2013Q4

REPORT INFORMATION
  Report Type: Spontaneous
  Country: IT (occurrence: IT)
  Receive Date: 20130607
  Receipt Date: 20131009
  Transmission Date: 20140711
  Serious: Yes (Hospitalization)
  Sender: FDA-Public Use
  Company Number: IT-ELI_LILLY_AND_COMPANY-IT201306001188

PATIENT
  Age: 70 Year
  Sex: Male

DRUGS (2)
  1. GEMZAR [Suspect]
     Indication: PANCREATIC CARCINOMA
     Dosage: 1900 MG, CYCLICAL
     Route: 042
     Dates: start: 20130101, end: 20130429
  2. LEVOFLOXACIN [Suspect]
     Indication: INFECTION
     Dosage: 500 MG, QD
     Route: 048
     Dates: start: 20130501, end: 20130507

REACTIONS (5)
  - Pleural effusion [Recovering/Resolving]
  - Renal failure [Recovering/Resolving]
  - Oedema [Recovering/Resolving]
  - Thrombotic microangiopathy [Unknown]
  - Infection [Unknown]
